FAERS Safety Report 20154221 (Version 1)
Quarter: 2021Q4

REPORT INFORMATION
  Report Type: Other
  Country: AU (occurrence: None)
  Receive Date: 20211207
  Receipt Date: 20211207
  Transmission Date: 20220303
  Serious: Yes (Other)
  Sender: FDA-Public Use
  Company Number: AU-ROCHE-2968467

PATIENT

DRUGS (3)
  1. CAPECITABINE [Suspect]
     Active Substance: CAPECITABINE
     Indication: Adenocarcinoma gastric
     Dosage: DAY 1 TO DAY 14
     Route: 048
  2. CISPLATIN [Suspect]
     Active Substance: CISPLATIN
     Indication: Adenocarcinoma gastric
     Dosage: ON DAY 1
     Route: 042
  3. PACLITAXEL [Suspect]
     Active Substance: PACLITAXEL
     Indication: Adenocarcinoma gastric
     Dosage: (PACLITAXEL IN 500 ML OF GLUCOSE AND 5% IN WATER) ON DAY 1 AND 8
     Route: 033

REACTIONS (17)
  - Neutropenia [Unknown]
  - Decreased appetite [Unknown]
  - Cachexia [Unknown]
  - Embolism venous [Unknown]
  - Febrile neutropenia [Unknown]
  - Small intestinal obstruction [Unknown]
  - Nausea [Unknown]
  - Vomiting [Unknown]
  - Diarrhoea [Unknown]
  - Infection [Unknown]
  - Hypotension [Unknown]
  - Palmar-plantar erythrodysaesthesia syndrome [Unknown]
  - Dysphagia [Unknown]
  - Anaemia [Unknown]
  - Fall [Unknown]
  - Hypokalaemia [Unknown]
  - Mucosal inflammation [Unknown]
